FAERS Safety Report 5144101-1 (Version None)
Quarter: 2006Q4

REPORT INFORMATION
  Report Type: 
  Country: None (occurrence: None)
  Receive Date: 20061106
  Receipt Date: 20061026
  Transmission Date: 20070319
  Serious: Yes (Other)
  Sender: FDA-Public Use
  Company Number: US-JNJFOC-20061006785

PATIENT
  Age: 60 Year
  Sex: Female

DRUGS (6)
  1. DOXIL [Suspect]
     Route: 042
  2. DOXIL [Suspect]
     Indication: BREAST CANCER METASTATIC
     Route: 042
  3. CODEINE [Concomitant]
  4. LOSARTAN/HYDROCHLOROTHIAZIDE [Concomitant]
  5. ESOMEPRAZOLE MAGNESIUM [Concomitant]
  6. PEGFILGRASTIM [Concomitant]

REACTIONS (2)
  - DERMATITIS [None]
  - IMPETIGO [None]
